FAERS Safety Report 25275055 (Version 2)
Quarter: 2025Q3

REPORT INFORMATION
  Report Type: Spontaneous
  Country: US (occurrence: US)
  Receive Date: 20250506
  Receipt Date: 20250702
  Transmission Date: 20251021
  Serious: No
  Sender: PFIZER
  Company Number: US-PFIZER INC-PV202500053014

PATIENT
  Age: 61 Year
  Sex: Female

DRUGS (3)
  1. TUKYSA [Interacting]
     Active Substance: TUCATINIB
     Dosage: 300 MG, TWICE DAILY
  2. TUKYSA [Interacting]
     Active Substance: TUCATINIB
     Dosage: 200 MG, TWICE A DAY
     Route: 048
  3. TRAMADOL [Interacting]
     Active Substance: TRAMADOL

REACTIONS (1)
  - Drug interaction [Unknown]
